FAERS Safety Report 8394337-1 (Version None)
Quarter: 2012Q2

REPORT INFORMATION
  Report Type: 
  Country: None (occurrence: None)
  Receive Date: 20120530
  Receipt Date: 20120523
  Transmission Date: 20120825
  Serious: Yes (Other)
  Sender: FDA-Public Use
  Company Number: US-JNJFOC-20120518346

PATIENT
  Age: 33 Year
  Sex: Female

DRUGS (2)
  1. ORTHO CYCLEN-28 [Suspect]
     Indication: CONTRACEPTION
     Route: 048
     Dates: start: 20120301
  2. ORTHO TRI-CYCLEN [Suspect]
     Indication: CONTRACEPTION
     Route: 048
     Dates: start: 20120301

REACTIONS (1)
  - ABDOMINAL MASS [None]
